FAERS Safety Report 7191069-2 (Version None)
Quarter: 2010Q4

REPORT INFORMATION
  Report Type: 
  Country: None (occurrence: None)
  Receive Date: 20101222
  Receipt Date: 20101222
  Transmission Date: 20110411
  Serious: Yes (Life-Threatening, Hospitalization, Disabling, Other)
  Sender: FDA-Public Use
  Company Number: None

PATIENT
  Sex: Female
  Weight: 67.1324 kg

DRUGS (2)
  1. DARVOCET [Suspect]
     Indication: BACK PAIN
     Dosage: 100-650 1 TABLET TWICE A DAY AS NEEDED
     Dates: start: 20080101, end: 20100101
  2. DARVOCET [Suspect]
     Indication: PAIN IN EXTREMITY
     Dosage: 100-650 1 TABLET TWICE A DAY AS NEEDED
     Dates: start: 20080101, end: 20100101

REACTIONS (3)
  - DIZZINESS [None]
  - PALPITATIONS [None]
  - SYNCOPE [None]
